FAERS Safety Report 14240127 (Version 1)
Quarter: 2017Q4

REPORT INFORMATION
  Report Type: Spontaneous
  Country: US (occurrence: US)
  Receive Date: 20171129
  Receipt Date: 20171129
  Transmission Date: 20180321
  Serious: Yes (Other)
  Sender: FDA-Public Use
  Company Number: None

PATIENT
  Age: 55 Year
  Sex: Male
  Weight: 180 kg

DRUGS (17)
  1. ATENOLOL. [Concomitant]
     Active Substance: ATENOLOL
  2. VITAMIN D [Concomitant]
     Active Substance: CHOLECALCIFEROL
  3. AZELASTIN NASAL SPRAY [Concomitant]
  4. DIAZEPAM. [Concomitant]
     Active Substance: DIAZEPAM
  5. TUMERIC [Concomitant]
     Active Substance: HERBALS\TURMERIC
  6. CIMETIDINE [Concomitant]
     Active Substance: CIMETIDINE
  7. LEVOTHYROXINE. [Concomitant]
     Active Substance: LEVOTHYROXINE
  8. TIZANIDINE. [Concomitant]
     Active Substance: TIZANIDINE
  9. VERAPAMIL [Concomitant]
     Active Substance: VERAPAMIL HYDROCHLORIDE
  10. OXYCODONE [Suspect]
     Active Substance: OXYCODONE
     Indication: PAIN
     Route: 048
  11. CETIRIZINE [Concomitant]
     Active Substance: CETIRIZINE HYDROCHLORIDE
  12. MONTELUKAST [Concomitant]
     Active Substance: MONTELUKAST SODIUM
  13. ATORVASTATIN [Concomitant]
     Active Substance: ATORVASTATIN
  14. MELOXICAM. [Concomitant]
     Active Substance: MELOXICAM
  15. PROCTOFOAM [Concomitant]
     Active Substance: PRAMOXINE HYDROCHLORIDE
  16. CYCLOBENZAPRINE. [Concomitant]
     Active Substance: CYCLOBENZAPRINE
  17. LIDOCAINE PATCH AND OINTMENT [Concomitant]

REACTIONS (3)
  - Irritability [None]
  - Insomnia [None]
  - Pruritus [None]

NARRATIVE: CASE EVENT DATE: 20120115
